FAERS Safety Report 4726735-9 (Version None)
Quarter: 2005Q3

REPORT INFORMATION
  Report Type: 
  Country: None (occurrence: None)
  Receive Date: 20050725
  Receipt Date: 20050418
  Transmission Date: 20060218
  Serious: No
  Sender: FDA-Public Use
  Company Number: USA050495956

PATIENT
  Age: 27 Year
  Sex: Male

DRUGS (2)
  1. STRATTERA [Suspect]
     Indication: ATTENTION DEFICIT/HYPERACTIVITY DISORDER
     Dosage: 60 MG/1 DAY
     Dates: start: 20050413, end: 20050418
  2. CELEXA [Concomitant]

REACTIONS (3)
  - DISTURBANCE IN ATTENTION [None]
  - FEELING ABNORMAL [None]
  - LOGORRHOEA [None]
